FAERS Safety Report 7345717-4 (Version None)
Quarter: 2011Q1

REPORT INFORMATION
  Report Type: 
  Country: None (occurrence: None)
  Receive Date: 20110310
  Receipt Date: 20110304
  Transmission Date: 20110831
  Serious: Yes (Death)
  Sender: FDA-Public Use
  Company Number: US-BRISTOL-MYERS SQUIBB COMPANY-15593148

PATIENT

DRUGS (1)
  1. NYSTATIN [Suspect]
     Indication: SYSTEMIC MYCOSIS
     Dosage: 1ML SUSPENSION (100,000 UNITS/ML)
     Route: 048

REACTIONS (1)
  - NECROTISING COLITIS [None]
